FAERS Safety Report 8012829-1 (Version None)
Quarter: 2011Q4

REPORT INFORMATION
  Report Type: 
  Country: None (occurrence: None)
  Receive Date: 20111229
  Receipt Date: 20111223
  Transmission Date: 20120403
  Serious: Yes (Death)
  Sender: FDA-Public Use
  Company Number: ES-CELGENEUS-144-C5013-11061367

PATIENT
  Sex: Female

DRUGS (4)
  1. LENALIDOMIDE [Suspect]
     Dosage: 5 MILLIGRAM
     Route: 048
     Dates: start: 20070205, end: 20070918
  2. LENALIDOMIDE [Suspect]
     Route: 048
     Dates: start: 20070919, end: 20090914
  3. LENALIDOMIDE [Suspect]
     Route: 048
     Dates: start: 20060911, end: 20070103
  4. LENALIDOMIDE [Suspect]
     Dosage: 5 MILLIGRAM
     Route: 048
     Dates: start: 20070108, end: 20070204

REACTIONS (2)
  - ACUTE MYELOID LEUKAEMIA [None]
  - MYELODYSPLASTIC SYNDROME TRANSFORMATION [None]
